FAERS Safety Report 16658231 (Version 3)
Quarter: 2020Q1

REPORT INFORMATION
  Report Type: Report from Study
  Country: US (occurrence: US)
  Receive Date: 20190801
  Receipt Date: 20200219
  Transmission Date: 20200409
  Serious: Yes (Hospitalization)
  Sender: FDA-Public Use
  Company Number: US-ACTELION-A-US2016-136197

PATIENT
  Age: 50 Year
  Sex: Male
  Weight: 105.67 kg

DRUGS (5)
  1. OPSUMIT [Suspect]
     Active Substance: MACITENTAN
     Indication: PULMONARY HYPERTENSION
     Dosage: 10 MG, QD
     Route: 048
     Dates: start: 20150727
  2. SILDENAFIL. [Concomitant]
     Active Substance: SILDENAFIL
  3. OPSUMIT [Suspect]
     Active Substance: MACITENTAN
     Dosage: 10 MG, QD
     Route: 048
     Dates: start: 20180316
  4. UPTRAVI [Suspect]
     Active Substance: SELEXIPAG
     Indication: PULMONARY HYPERTENSION
     Dosage: 800 MCG, UNK
     Route: 048
  5. UPTRAVI [Suspect]
     Active Substance: SELEXIPAG
     Dosage: 1600 MCG, BID
     Route: 048

REACTIONS (25)
  - Arthralgia [Unknown]
  - Headache [Unknown]
  - Flushing [Not Recovered/Not Resolved]
  - Pain in extremity [Unknown]
  - Pain [Unknown]
  - Acute respiratory failure [Recovered/Resolved]
  - Neuropathy peripheral [Unknown]
  - Product dose omission [Unknown]
  - Disease progression [Recovered/Resolved]
  - Feeling abnormal [Unknown]
  - Musculoskeletal pain [Unknown]
  - Oedema [Not Recovered/Not Resolved]
  - Therapy change [Unknown]
  - Cardiac failure acute [Recovered/Resolved]
  - Dizziness [Unknown]
  - Dizziness exertional [Unknown]
  - Hypoxia [Recovered/Resolved]
  - Limb discomfort [Unknown]
  - Fatigue [Unknown]
  - Dyspnoea [Unknown]
  - Pulmonary hypertension [Unknown]
  - Eye irritation [Unknown]
  - Feeling hot [Unknown]
  - Burning sensation [Recovered/Resolved]
  - Blood bilirubin increased [Recovered/Resolved]

NARRATIVE: CASE EVENT DATE: 20160110
